FAERS Safety Report 7809137-8 (Version None)
Quarter: 2011Q4

REPORT INFORMATION
  Report Type: 
  Country: None (occurrence: None)
  Receive Date: 20111012
  Receipt Date: 20110928
  Transmission Date: 20120403
  Serious: Yes (Hospitalization, Other)
  Sender: FDA-Public Use
  Company Number: BR-ROCHE-718173

PATIENT
  Sex: Female
  Weight: 60 kg

DRUGS (25)
  1. NAPRIX [Concomitant]
     Dosage: DOSE REPORTED AS 80+ 12.5 MG
  2. ATACAND [Concomitant]
     Dosage: DOSE: 16 MG+12.5 MG
  3. ATENOLOL [Concomitant]
  4. NAPRIX [Concomitant]
  5. VENLIFT [Concomitant]
  6. METHOTREXATE [Concomitant]
  7. MABTHERA [Suspect]
     Indication: RHEUMATOID ARTHRITIS
     Dosage: STOP DATE: OCT 2009
     Route: 042
     Dates: start: 20091011, end: 20091001
  8. ACTEMRA [Suspect]
     Indication: RHEUMATOID ARTHRITIS
     Route: 042
  9. METFORMIN HYDROCHLORIDE [Concomitant]
  10. FLORATIL [Concomitant]
  11. LEXOTAN [Concomitant]
  12. LISADOR [Concomitant]
  13. NISULID [Concomitant]
  14. HEDERA HELIX [Concomitant]
  15. ACTEMRA [Suspect]
     Route: 042
     Dates: start: 20110622, end: 20110701
  16. LEVOTHYROXINE SODIUM [Concomitant]
  17. MICARDIS [Concomitant]
     Dosage: DOSE: 80/12.5 MG
  18. MABTHERA [Suspect]
     Dosage: FORM: INFUSION
     Route: 042
     Dates: start: 20100705, end: 20100721
  19. CREON [Concomitant]
  20. ACETYLCYSTEINE [Concomitant]
  21. ALDOMET [Concomitant]
  22. NAPRIX [Concomitant]
  23. VEROTINA [Concomitant]
  24. ADDERALL 5 [Concomitant]
  25. BENZETACIL [Concomitant]

REACTIONS (21)
  - HYPERTENSION [None]
  - HYPERHIDROSIS [None]
  - JOINT EFFUSION [None]
  - JOINT SWELLING [None]
  - DYSPHONIA [None]
  - SINUSITIS [None]
  - INSOMNIA [None]
  - NASOPHARYNGITIS [None]
  - BLOOD IRON DECREASED [None]
  - COUGH [None]
  - MALAISE [None]
  - TACHYCARDIA [None]
  - ARTHRITIS [None]
  - PAIN [None]
  - SWELLING [None]
  - CARDIAC DISORDER [None]
  - BLOOD PRESSURE FLUCTUATION [None]
  - DEPRESSION [None]
  - SOMNOLENCE [None]
  - HEADACHE [None]
  - ARTHRALGIA [None]
